FAERS Safety Report 10086900 (Version 1)
Quarter: 2014Q2

REPORT INFORMATION
  Report Type: Report from Study
  Country: FR (occurrence: FR)
  Receive Date: 20140418
  Receipt Date: 20140418
  Transmission Date: 20141212
  Serious: Yes (Hospitalization)
  Sender: FDA-Public Use
  Company Number: FR-ASTRAZENECA-2014SE25740

PATIENT
  Age: 24330 Day
  Sex: Female

DRUGS (4)
  1. AZD6140 [Suspect]
     Indication: CARDIOVASCULAR EVENT PROPHYLAXIS
     Dosage: 180 MG (TWO TABLETS) LOADING DOSE ON DAY 1
     Route: 048
     Dates: start: 20140318
  2. AZD6140 [Suspect]
     Indication: CARDIOVASCULAR EVENT PROPHYLAXIS
     Route: 048
     Dates: start: 20140319
  3. ATENOLOL [Concomitant]
  4. SIMVASTATINE [Concomitant]
     Dates: start: 20140321

REACTIONS (1)
  - Vitreous detachment [Not Recovered/Not Resolved]
